FAERS Safety Report 4638837-6 (Version None)
Quarter: 2005Q2

REPORT INFORMATION
  Report Type: 
  Country: None (occurrence: None)
  Receive Date: 20050418
  Receipt Date: 20050418
  Transmission Date: 20051028
  Serious: Yes (Other)
  Sender: FDA-Public Use
  Company Number: None

PATIENT
  Sex: Female
  Weight: 57.1532 kg

DRUGS (3)
  1. AMBIEN [Suspect]
     Indication: INSOMNIA
     Dosage: 10     PRN AT HS   ORAL
     Route: 048
     Dates: start: 20050406, end: 20050406
  2. PROZAC [Concomitant]
  3. BUSPAR [Concomitant]

REACTIONS (2)
  - BALANCE DISORDER [None]
  - HALLUCINATION, VISUAL [None]
